FAERS Safety Report 16164309 (Version 1)
Quarter: 2019Q2

REPORT INFORMATION
  Report Type: Spontaneous
  Country: US (occurrence: US)
  Receive Date: 20190405
  Receipt Date: 20190405
  Transmission Date: 20190711
  Serious: Yes (Hospitalization)
  Sender: FDA-Public Use
  Company Number: US-MYLANLABS-2019M1030949

PATIENT
  Age: 79 Year
  Sex: Female

DRUGS (1)
  1. ALENDRONATE [Suspect]
     Active Substance: ALENDRONATE SODIUM
     Indication: OSTEOPOROSIS
     Route: 048

REACTIONS (5)
  - Osteonecrosis of jaw [Recovered/Resolved]
  - Infection [Recovered/Resolved]
  - Abscess jaw [Recovered/Resolved]
  - Oral cavity fistula [Recovered/Resolved]
  - Enterobacter infection [Recovered/Resolved]
